FAERS Safety Report 13545426 (Version 2)
Quarter: 2018Q1

REPORT INFORMATION
  Report Type: Spontaneous
  Country: US (occurrence: US)
  Receive Date: 20170515
  Receipt Date: 20180309
  Transmission Date: 20180508
  Serious: Yes (Hospitalization)
  Sender: FDA-Public Use
  Company Number: US-PFIZER INC-2017137954

PATIENT
  Age: 81 Year
  Sex: Male

DRUGS (20)
  1. AMLODIPINE [Concomitant]
     Active Substance: AMLODIPINE BESYLATE
     Dosage: 5 MG, DAILY
     Route: 048
  2. KEFLEXIN [Concomitant]
     Active Substance: CEPHALEXIN
     Dosage: 500 MG, 4X/DAY
     Route: 048
  3. AVODART [Concomitant]
     Active Substance: DUTASTERIDE
     Dosage: 0.5 MG, 1X/DAY(EVERY MORNING)
     Route: 048
  4. XARELTO [Concomitant]
     Active Substance: RIVAROXABAN
     Indication: THROMBOSIS PROPHYLAXIS
     Dosage: 20 MG, DAILY(ONCE DAILY WITH EVENING MEAL)
     Route: 048
  5. LYRICA [Suspect]
     Active Substance: PREGABALIN
     Indication: DIABETIC NEUROPATHY
  6. FENOFIBRATE. [Concomitant]
     Active Substance: FENOFIBRATE
     Dosage: 160 MG, ALTERNATE DAY(TAKES ON EVEN DAYS)
     Route: 048
  7. THERA-M [Concomitant]
     Dosage: 1 DF, DAILY
     Route: 048
  8. LANTUS [Concomitant]
     Active Substance: INSULIN GLARGINE
     Dosage: 25 IU, 1X/DAY(EVERY MORNING)
     Route: 058
  9. TEARS NATURALE F [Concomitant]
     Indication: DRY EYE
     Dosage: 2 GTT, AS NEEDED (1 DROP EACH EYE EVERY 2 HOURS)
     Route: 047
  10. LANTUS [Concomitant]
     Active Substance: INSULIN GLARGINE
     Indication: BLOOD INSULIN ABNORMAL
     Dosage: 25 IU, 1X/DAY(EVERY MORNING)
     Route: 058
  11. CALCIUM 600 + D [Concomitant]
     Active Substance: CALCIUM\VITAMIN D
     Dosage: 1 DF, 1X/DAY(CALCIUM CARBONATE, COLECALCIFEROL) (EVERY MORNING)
     Route: 048
  12. VITAMIN D3 [Concomitant]
     Active Substance: CHOLECALCIFEROL
     Dosage: 50000 IU, WEEKLY(EVERY FRIDAY)
     Route: 048
  13. POLYETHYLENE GLYCOL 3350. [Concomitant]
     Active Substance: POLYETHYLENE GLYCOL 3350
     Dosage: 17 G, 2X/WEEK(17 GM BY MOUTH DAILY ON MONDAY AND THURSDAY)
     Route: 048
  14. CYANOCOBALAMIN. [Concomitant]
     Active Substance: CYANOCOBALAMIN
     Dosage: 1 ML, MONTHLY(DUE ON THE 24TH)
     Route: 030
  15. FLECAINIDE [Concomitant]
     Active Substance: FLECAINIDE
     Dosage: 50 MG, 2X/DAY
     Route: 048
  16. LOSARTAN. [Concomitant]
     Active Substance: LOSARTAN
     Dosage: 100 MG, DAILY
     Route: 048
  17. LYRICA [Suspect]
     Active Substance: PREGABALIN
     Indication: CONTUSION
     Dosage: 300 MG, DAILY(75 MG, 1- BREAKFAST, 1 - LUNCH, 2- NIGHT)
     Route: 048
     Dates: start: 2015
  18. HUMALOG [Concomitant]
     Active Substance: INSULIN LISPRO
     Indication: BLOOD INSULIN ABNORMAL
     Dosage: UNK
  19. COLLAGENASE SANTYL [Concomitant]
     Active Substance: COLLAGENASE CLOSTRIDIUM HISTOLYTICUM
     Dosage: 1 DF, 2X/WEEK
     Route: 061
  20. TRAMADOL. [Concomitant]
     Active Substance: TRAMADOL
     Indication: PAIN
     Dosage: 50 MG, AS NEEDED (1 TABLET BY MOUTH EVERY 6 HOURS)
     Route: 048

REACTIONS (3)
  - Diabetes mellitus [Recovered/Resolved]
  - Thrombosis [Recovered/Resolved]
  - Disease progression [Recovered/Resolved]
